FAERS Safety Report 5703914-5 (Version None)
Quarter: 2008Q2

REPORT INFORMATION
  Report Type: 
  Country: None (occurrence: None)
  Receive Date: 20080409
  Receipt Date: 20080325
  Transmission Date: 20081010
  Serious: Yes (Life-Threatening)
  Sender: FDA-Public Use
  Company Number: 025660

PATIENT
  Age: 26 Year
  Sex: Female

DRUGS (5)
  1. ALPRAZOLAM [Suspect]
  2. TOPIRAMATE [Suspect]
  3. ARIPIPRAZOLE [Suspect]
  4. BUPROPION HCL [Suspect]
  5. PREGABALIN(PREGABALIN) [Suspect]

REACTIONS (2)
  - NEUROLEPTIC MALIGNANT SYNDROME [None]
  - OVERDOSE [None]
